FAERS Safety Report 7504612-8 (Version None)
Quarter: 2011Q2

REPORT INFORMATION
  Report Type: 
  Country: None (occurrence: None)
  Receive Date: 20110525
  Receipt Date: 20110216
  Transmission Date: 20111010
  Serious: Yes (Other)
  Sender: FDA-Public Use
  Company Number: US-AMGEN-QUU429452

PATIENT
  Age: 60 Year
  Sex: Male
  Weight: 101.7 kg

DRUGS (6)
  1. POTASSIUM CHLORIDE [Concomitant]
     Dosage: UNK UNK, UNK
     Route: 048
  2. NPLATE [Suspect]
     Indication: IDIOPATHIC THROMBOCYTOPENIC PURPURA
     Dosage: 100 A?G, QWK
     Route: 058
     Dates: start: 20100303, end: 20100512
  3. WARFARIN SODIUM [Concomitant]
     Dosage: UNK UNK, UNK
     Route: 048
  4. FUROSEMIDE [Concomitant]
     Dosage: UNK UNK, UNK
     Route: 048
  5. ATENOLOL [Concomitant]
     Dosage: UNK UNK, UNK
     Route: 048
  6. COMBIVENT [Concomitant]
     Dosage: UNK UNK, UNK
     Route: 055

REACTIONS (9)
  - HEADACHE [None]
  - ARTHRALGIA [None]
  - DRUG INEFFECTIVE [None]
  - DIZZINESS [None]
  - FATIGUE [None]
  - DYSPEPSIA [None]
  - MYALGIA [None]
  - ABDOMINAL PAIN [None]
  - PARAESTHESIA [None]
